FAERS Safety Report 6104083-2 (Version None)
Quarter: 2009Q1

REPORT INFORMATION
  Report Type: 
  Country: None (occurrence: None)
  Receive Date: 20090227
  Receipt Date: 20080305
  Transmission Date: 20090719
  Serious: Yes (Other)
  Sender: FDA-Public Use
  Company Number: 552254

PATIENT
  Age: 19 Year
  Sex: Female
  Weight: 52.2 kg

DRUGS (2)
  1. ACCUTANE [Suspect]
     Indication: ACNE
     Dosage: 40 MG DAILY
     Dates: start: 20030902, end: 20031201
  2. AMNESTEEM [Suspect]
     Indication: ACNE
     Dosage: 40 MG DAILY
     Dates: start: 20031006, end: 20040201

REACTIONS (14)
  - BACK PAIN [None]
  - BIPOLAR DISORDER [None]
  - CROHN'S DISEASE [None]
  - DEPRESSION [None]
  - DRY EYE [None]
  - DRY SKIN [None]
  - ERYTHEMA [None]
  - FATIGUE [None]
  - INFLAMMATORY BOWEL DISEASE [None]
  - LIP DRY [None]
  - MYALGIA [None]
  - OBSESSIVE-COMPULSIVE DISORDER [None]
  - SCAR [None]
  - SKIN DISCOLOURATION [None]
